FAERS Safety Report 13462105 (Version 1)
Quarter: 2017Q2

REPORT INFORMATION
  Report Type: Spontaneous
  Country: US (occurrence: US)
  Receive Date: 20170420
  Receipt Date: 20170420
  Transmission Date: 20170830
  Serious: Yes (Other)
  Sender: FDA-Public Use
  Company Number: US-BAYER-2017-073458

PATIENT
  Sex: Female

DRUGS (1)
  1. MIRENA [Suspect]
     Active Substance: LEVONORGESTREL
     Indication: PELVIC PAIN
     Dosage: 20 MCG/24HR, CONT
     Route: 015
     Dates: start: 20140127, end: 20140609

REACTIONS (4)
  - Abdominal pain lower [None]
  - Vaginal haemorrhage [None]
  - Uterine haemorrhage [None]
  - Off label use of device [None]

NARRATIVE: CASE EVENT DATE: 201406
